FAERS Safety Report 6858188-9 (Version None)
Quarter: 2010Q3

REPORT INFORMATION
  Report Type: 
  Country: None (occurrence: None)
  Receive Date: 20100719
  Receipt Date: 20080131
  Transmission Date: 20110219
  Serious: No
  Sender: FDA-Public Use
  Company Number: US-PFIZER INC-2008011217

PATIENT
  Sex: Female
  Weight: 65.909 kg

DRUGS (3)
  1. CHANTIX [Suspect]
     Indication: SMOKING CESSATION THERAPY
     Dosage: 0.5MG QD EVERY DAY TDD:0.5MG
     Dates: start: 20080101
  2. ANALGESICS [Concomitant]
     Indication: BACK DISORDER
  3. DRUG, UNSPECIFIED [Concomitant]
     Indication: MENOPAUSAL SYMPTOMS

REACTIONS (3)
  - FATIGUE [None]
  - MOOD SWINGS [None]
  - NAUSEA [None]
